FAERS Safety Report 14280102 (Version 5)
Quarter: 2018Q3

REPORT INFORMATION
  Report Type: Report from Study
  Country: US (occurrence: US)
  Receive Date: 20171212
  Receipt Date: 20180924
  Transmission Date: 20181010
  Serious: Yes (Hospitalization)
  Sender: FDA-Public Use
  Company Number: US-BAUSCH-BL-2017-034055

PATIENT
  Age: 69 Year
  Sex: Female
  Weight: 95.79 kg

DRUGS (3)
  1. BYSTOLIC [Concomitant]
     Active Substance: NEBIVOLOL HYDROCHLORIDE
     Indication: HYPERTENSION
  2. DILTIAZEM ER [Concomitant]
     Active Substance: DILTIAZEM
     Indication: HYPERTENSION
  3. CUPRIMINE [Suspect]
     Active Substance: PENICILLAMINE
     Indication: HEPATO-LENTICULAR DEGENERATION
     Dosage: STARTED SINCE THE PATIENT WAS 25?YEAR?OLD
     Route: 048

REACTIONS (9)
  - Haematoma [Recovered/Resolved]
  - Gallbladder disorder [Not Recovered/Not Resolved]
  - Renal impairment [Recovered/Resolved]
  - Rectourethral fistula [Recovered/Resolved]
  - Dysarthria [Recovered/Resolved]
  - Renal disorder [Not Recovered/Not Resolved]
  - Limb injury [Recovering/Resolving]
  - Cardiac disorder [Not Recovered/Not Resolved]
  - Urinary tract infection [Not Recovered/Not Resolved]

NARRATIVE: CASE EVENT DATE: 20171016
